FAERS Safety Report 20946030 (Version 1)
Quarter: 2022Q2

REPORT INFORMATION
  Report Type: Spontaneous
  Country: US (occurrence: US)
  Receive Date: 20220610
  Receipt Date: 20220610
  Transmission Date: 20220720
  Serious: Yes (Hospitalization, Other)
  Sender: FDA-Public Use
  Company Number: US-BoehringerIngelheim-2022-BI-174680

PATIENT
  Age: 74 Year
  Sex: Male
  Weight: 86.2 kg

DRUGS (13)
  1. JARDIANCE [Suspect]
     Active Substance: EMPAGLIFLOZIN
     Indication: Product used for unknown indication
     Dosage: MORNING BY MOUTH
     Route: 048
  2. DULOXETINE(CYMBALTA) [Concomitant]
     Indication: Product used for unknown indication
     Dosage: IN THE MORNING, DELAYED RELEASE
     Route: 048
  3. ACICLOVIR (ZOVIRAX) [Concomitant]
     Indication: Product used for unknown indication
     Dosage: MORNING AND BEFORE BEDTIME
     Route: 048
  4. NORVASC [Concomitant]
     Active Substance: AMLODIPINE BESYLATE
     Indication: Product used for unknown indication
     Dosage: MORNING
     Route: 048
     Dates: start: 20220121
  5. PLAVIX [Concomitant]
     Active Substance: CLOPIDOGREL BISULFATE
     Indication: Product used for unknown indication
     Dosage: MORNING
     Route: 048
  6. LOSARTAN (COZAAR) [Concomitant]
     Indication: Product used for unknown indication
     Dosage: MORNING
     Route: 048
     Dates: start: 20220121
  7. COLACE [Concomitant]
     Active Substance: DOCUSATE SODIUM
     Indication: Product used for unknown indication
     Dosage: BID
     Route: 048
  8. HEPARIN SODIUM [Concomitant]
     Active Substance: HEPARIN SODIUM
     Indication: Product used for unknown indication
     Route: 058
  9. GLUCOSE (GLUTOSE) [Concomitant]
     Indication: Product used for unknown indication
     Dosage: 15 GRAM ORAL
     Route: 048
  10. dextrose 50 % (D50) [Concomitant]
     Indication: Product used for unknown indication
     Dosage: FORM OF ADMIN: SYRINGE
     Route: 042
  11. DEXTROSE [Concomitant]
     Active Substance: DEXTROSE
     Indication: Product used for unknown indication
     Dosage: BOLUS SOLUTION 250ML
     Route: 042
  12. GLUCAGON (humun recombinant)(GLUCAGEN) [Concomitant]
     Indication: Product used for unknown indication
     Route: 030
  13. insulin aspart(NOVOLOG) [Concomitant]
     Indication: Product used for unknown indication
     Route: 058

REACTIONS (1)
  - COVID-19 pneumonia [Unknown]

NARRATIVE: CASE EVENT DATE: 20220120
